FAERS Safety Report 16659773 (Version 1)
Quarter: 2019Q3

REPORT INFORMATION
  Report Type: Spontaneous
  Country: ES (occurrence: ES)
  Receive Date: 20190802
  Receipt Date: 20190802
  Transmission Date: 20191004
  Serious: Yes (Other)
  Sender: FDA-Public Use
  Company Number: ES-TEVA-2019-ES-1086919

PATIENT
  Age: 76 Year
  Sex: Female
  Weight: 50 kg

DRUGS (1)
  1. MEMANTINA 5MG 10MG 15 MG 20 MG 28 COMPRIMIDOS [Suspect]
     Active Substance: MEMANTINE HYDROCHLORIDE
     Indication: COGNITIVE DISORDER
     Dosage: 1 DOSAGE FORMS, MEMANTINE:. YOU WILL START WITH 5 MG WITH BREAKFAST A WEEK, THEN - 10 MG WITH BREAKF
     Route: 048
     Dates: start: 20190526, end: 20190711

REACTIONS (3)
  - Dizziness [Unknown]
  - Blood pressure systolic increased [Unknown]
  - Bradycardia [Unknown]

NARRATIVE: CASE EVENT DATE: 2019
